FAERS Safety Report 5553574-1 (Version None)
Quarter: 2007Q4

REPORT INFORMATION
  Report Type: 
  Country: None (occurrence: None)
  Receive Date: 20071212
  Receipt Date: 20071212
  Transmission Date: 20080405
  Serious: Yes (Other)
  Sender: FDA-Public Use
  Company Number: None

PATIENT
  Sex: Male
  Weight: 116.5744 kg

DRUGS (1)
  1. MONOPRIL [Suspect]
     Indication: BLOOD PRESSURE
     Dosage: 10MG - 2 TABS TWICE DAILY PO
     Route: 048
     Dates: start: 20040701, end: 20040801

REACTIONS (5)
  - ASTHENIA [None]
  - BLOOD PRESSURE INCREASED [None]
  - DYSPNOEA [None]
  - HEADACHE [None]
  - NAUSEA [None]
